FAERS Safety Report 16379806 (Version 2)
Quarter: 2019Q3

REPORT INFORMATION
  Report Type: Spontaneous
  Country: US (occurrence: US)
  Receive Date: 20190531
  Receipt Date: 20190827
  Transmission Date: 20191004
  Serious: Yes (Other)
  Sender: FDA-Public Use
  Company Number: US-009507513-1905USA010588

PATIENT
  Age: 13 Year
  Sex: Female
  Weight: 60.32 kg

DRUGS (2)
  1. NEXPLANON [Suspect]
     Active Substance: ETONOGESTREL
     Indication: CONTRACEPTION
     Dosage: 1IMPLANT
     Route: 059
     Dates: start: 20190503, end: 20190510
  2. NEXPLANON [Suspect]
     Active Substance: ETONOGESTREL
     Indication: MENSTRUATION IRREGULAR

REACTIONS (5)
  - Body temperature abnormal [Recovered/Resolved]
  - Implant site dehiscence [Recovered/Resolved]
  - Implant site discharge [Recovered/Resolved]
  - Product use in unapproved indication [Unknown]
  - Implant site infection [Recovered/Resolved]

NARRATIVE: CASE EVENT DATE: 20190503
